FAERS Safety Report 25575071 (Version 1)
Quarter: 2025Q3

REPORT INFORMATION
  Report Type: Spontaneous
  Country: US (occurrence: US)
  Receive Date: 20250718
  Receipt Date: 20250718
  Transmission Date: 20251021
  Serious: Yes (Other)
  Sender: AMGEN
  Company Number: US-AMGEN-USASP2025140104

PATIENT
  Age: 69 Year
  Sex: Female

DRUGS (3)
  1. PROLIA [Suspect]
     Active Substance: DENOSUMAB
     Indication: Osteoporosis postmenopausal
     Route: 058
  2. CALCIUM [Concomitant]
     Active Substance: CALCIUM
     Dosage: 1200 MILLIGRAM, QD
  3. VITAMIN D3 [Concomitant]
     Active Substance: CHOLECALCIFEROL
     Dosage: 2000 INTERNATIONAL UNIT, QD

REACTIONS (4)
  - Spinal cord compression [Recovered/Resolved]
  - Intervertebral disc protrusion [Recovered/Resolved]
  - Aortic arteriosclerosis [Unknown]
  - Blood calcium increased [Unknown]
